FAERS Safety Report 4850488-7 (Version None)
Quarter: 2005Q4

REPORT INFORMATION
  Report Type: 
  Country: None (occurrence: None)
  Receive Date: 20051125
  Receipt Date: 20050720
  Transmission Date: 20060501
  Serious: Yes (Other)
  Sender: FDA-Public Use
  Company Number: HQWYE359321JUL05

PATIENT
  Age: 84 Year
  Sex: Female

DRUGS (1)
  1. PREMARIN [Suspect]
     Dosage: 0.625MG, VAGINAL
     Route: 067

REACTIONS (2)
  - ENDOMETRIAL CANCER [None]
  - HAEMORRHAGE [None]
